FAERS Safety Report 4504336-5 (Version None)
Quarter: 2004Q4

REPORT INFORMATION
  Report Type: 
  Country: None (occurrence: None)
  Receive Date: 20041118
  Receipt Date: 20041018
  Transmission Date: 20050328
  Serious: Yes (Life-Threatening, Hospitalization)
  Sender: FDA-Public Use
  Company Number: DEWYE114518OCT04

PATIENT
  Sex: Male
  Weight: 63 kg

DRUGS (4)
  1. ENBREL [Suspect]
     Indication: ANKYLOSING SPONDYLITIS
     Route: 058
     Dates: start: 20040819, end: 20040930
  2. ENBREL [Suspect]
  3. VIOXX [Suspect]
     Route: 048
     Dates: start: 20020624, end: 20040927
  4. BUDESONIDE [Concomitant]
     Route: 048
     Dates: start: 20040610, end: 20040915

REACTIONS (16)
  - ALANINE AMINOTRANSFERASE DECREASED [None]
  - ASPARTATE AMINOTRANSFERASE DECREASED [None]
  - BLOOD CREATINE PHOSPHOKINASE INCREASED [None]
  - BLOOD CREATINE PHOSPHOKINASE MB INCREASED [None]
  - C-REACTIVE PROTEIN INCREASED [None]
  - CONVULSION [None]
  - DEHYDRATION [None]
  - DEMYELINATION [None]
  - DEPRESSED LEVEL OF CONSCIOUSNESS [None]
  - DIARRHOEA [None]
  - ENCOPRESIS [None]
  - KORSAKOFF'S PSYCHOSIS NON-ALCOHOLIC [None]
  - MYOGLOBIN BLOOD INCREASED [None]
  - SPEECH DISORDER [None]
  - VOMITING [None]
  - WHITE BLOOD CELL COUNT INCREASED [None]
